FAERS Safety Report 12322974 (Version 1)
Quarter: 2016Q2

REPORT INFORMATION
  Report Type: Spontaneous
  Country: US (occurrence: US)
  Receive Date: 20160502
  Receipt Date: 20160502
  Transmission Date: 20160815
  Serious: Yes (Hospitalization)
  Sender: FDA-Public Use
  Company Number: US-JNJFOC-20160327465

PATIENT
  Age: 7 Decade
  Sex: Female

DRUGS (3)
  1. LEVEMIR [Concomitant]
     Active Substance: INSULIN DETEMIR
     Route: 065
  2. INVOKANA [Suspect]
     Active Substance: CANAGLIFLOZIN
     Indication: TYPE 2 DIABETES MELLITUS
     Route: 048
     Dates: end: 201603
  3. INVOKANA [Suspect]
     Active Substance: CANAGLIFLOZIN
     Indication: TYPE 2 DIABETES MELLITUS
     Route: 048
     Dates: start: 201603

REACTIONS (1)
  - Pancreatitis [Unknown]

NARRATIVE: CASE EVENT DATE: 201603
